FAERS Safety Report 9361868 (Version 2)
Quarter: 2013Q3

REPORT INFORMATION
  Report Type: Spontaneous
  Country: US (occurrence: US)
  Receive Date: 20130621
  Receipt Date: 20130724
  Transmission Date: 20140515
  Serious: Yes (Death, Hospitalization)
  Sender: FDA-Public Use
  Company Number: US-GLAXOSMITHKLINE-A1027535A

PATIENT
  Age: 57 Year
  Sex: Male
  Weight: 89.9 kg

DRUGS (1)
  1. ARIXTRA [Suspect]
     Indication: PULMONARY EMBOLISM
     Dosage: 7.5MG UNKNOWN
     Route: 065
     Dates: start: 20120620, end: 20120712

REACTIONS (2)
  - Small cell lung cancer metastatic [Fatal]
  - Metastases to central nervous system [Fatal]
